FAERS Safety Report 8895581 (Version 1)
Quarter: 2012Q4

REPORT INFORMATION
  Report Type: Report from Study
  Country: DE (occurrence: DE)
  Receive Date: 20121108
  Receipt Date: 20121108
  Transmission Date: 20130627
  Serious: Yes (Other)
  Sender: FDA-Public Use
  Company Number: DE-VIIV HEALTHCARE LIMITED-B0842950A

PATIENT
  Age: 51 Year
  Sex: Male

DRUGS (3)
  1. ZIAGEN [Suspect]
     Indication: HIV INFECTION
     Route: 065
  2. VIREAD [Suspect]
     Indication: HIV INFECTION
     Route: 065
  3. SUSTIVA [Suspect]
     Indication: HIV INFECTION
     Route: 065

REACTIONS (3)
  - Anal cancer [Unknown]
  - Weight decreased [Unknown]
  - Depression [Unknown]
